FAERS Safety Report 21171789 (Version 2)
Quarter: 2022Q3

REPORT INFORMATION
  Report Type: Spontaneous
  Country: US (occurrence: US)
  Receive Date: 20220804
  Receipt Date: 20220805
  Transmission Date: 20221026
  Serious: Yes (Hospitalization, Other)
  Sender: FDA-Public Use
  Company Number: US-PFIZER INC-202201029487

PATIENT
  Age: 54 Year
  Sex: Female

DRUGS (1)
  1. PAXLOVID [Suspect]
     Active Substance: NIRMATRELVIR\RITONAVIR
     Indication: COVID-19 treatment
     Dosage: UNK

REACTIONS (9)
  - Drug ineffective [Unknown]
  - Loss of consciousness [Recovered/Resolved]
  - Bronchospasm [Recovered/Resolved]
  - Dyspnoea [Recovered/Resolved]
  - Middle insomnia [Recovered/Resolved]
  - Muscle spasms [Recovered/Resolved]
  - Panic attack [Recovered/Resolved]
  - Gait disturbance [Recovered/Resolved]
  - Feeling abnormal [Recovered/Resolved]
